FAERS Safety Report 10240668 (Version 1)
Quarter: 2014Q2

REPORT INFORMATION
  Report Type: Spontaneous
  Country: US (occurrence: US)
  Receive Date: 20140617
  Receipt Date: 20140617
  Transmission Date: 20141212
  Serious: Yes (Hospitalization)
  Sender: FDA-Public Use
  Company Number: US-JNJFOC-20140604253

PATIENT
  Sex: Female
  Weight: 77.11 kg

DRUGS (9)
  1. STELARA [Suspect]
     Indication: PRODUCT USED FOR UNKNOWN INDICATION
     Route: 058
     Dates: start: 20120217, end: 20140528
  2. MULTIVITAMINS [Concomitant]
     Route: 065
  3. FOLIC ACID [Concomitant]
     Route: 065
  4. COD LIVER OIL [Concomitant]
     Route: 065
  5. DOXEPIN [Concomitant]
     Route: 065
  6. KLONOPIN [Concomitant]
     Route: 065
  7. MTX [Concomitant]
     Route: 065
  8. PROZAC [Concomitant]
     Route: 065
  9. RISPERIDONE [Concomitant]
     Route: 065

REACTIONS (1)
  - Lymphadenopathy [Not Recovered/Not Resolved]
